FAERS Safety Report 12528442 (Version 1)
Quarter: 2016Q3

REPORT INFORMATION
  Report Type: Spontaneous
  Country: ES (occurrence: ES)
  Receive Date: 20160705
  Receipt Date: 20160705
  Transmission Date: 20161109
  Serious: Yes (Life-Threatening, Hospitalization)
  Sender: FDA-Public Use
  Company Number: ES-JNJFOC-20130114409

PATIENT
  Age: 50 Year
  Sex: Male

DRUGS (11)
  1. YONDELIS [Suspect]
     Active Substance: TRABECTEDIN
     Indication: MYXOID LIPOSARCOMA
     Dosage: CYCLE 1-3
     Route: 042
  2. APREPITANT. [Interacting]
     Active Substance: APREPITANT
     Indication: VOMITING
     Dosage: 80MG 24 AND 48 HOURS AFTER CHEMOTHERAPY
     Route: 065
  3. ONDANSETRON [Concomitant]
     Active Substance: ONDANSETRON
     Indication: VOMITING
     Route: 065
  4. RANITIDINE. [Concomitant]
     Active Substance: RANITIDINE
     Indication: PREMEDICATION
     Route: 065
  5. DEXAMETHASONE. [Concomitant]
     Active Substance: DEXAMETHASONE
     Indication: PREMEDICATION
     Route: 065
  6. DEXAMETHASONE. [Concomitant]
     Active Substance: DEXAMETHASONE
     Indication: PREMEDICATION
     Route: 065
  7. GRANISETRON [Concomitant]
     Active Substance: GRANISETRON
     Indication: PREMEDICATION
     Route: 065
  8. HEPARIN [Concomitant]
     Active Substance: HEPARIN SODIUM
     Indication: VENOUS THROMBOSIS
     Route: 065
  9. APREPITANT. [Interacting]
     Active Substance: APREPITANT
     Indication: VOMITING
     Dosage: 120MG ON THE DAY OF CHEMOTHERAPY
     Route: 065
  10. YONDELIS [Suspect]
     Active Substance: TRABECTEDIN
     Indication: MYXOID LIPOSARCOMA
     Dosage: CYCLE 4
     Route: 042
  11. RANITIDINE. [Concomitant]
     Active Substance: RANITIDINE
     Indication: PREMEDICATION
     Route: 065

REACTIONS (11)
  - Cardiac arrest [Recovered/Resolved]
  - Drug interaction [Unknown]
  - Bone marrow failure [Unknown]
  - Pyrexia [Unknown]
  - Respiratory failure [Unknown]
  - Bradycardia [Unknown]
  - Venous thrombosis [Recovered/Resolved]
  - Asthenia [Unknown]
  - Dyspnoea [Unknown]
  - Sepsis [Unknown]
  - Vomiting [Recovered/Resolved]
